FAERS Safety Report 22283609 (Version 1)
Quarter: 2023Q2

REPORT INFORMATION
  Report Type: Spontaneous
  Country: FR (occurrence: FR)
  Receive Date: 20230504
  Receipt Date: 20230504
  Transmission Date: 20230722
  Serious: Yes (Hospitalization)
  Sender: FDA-Public Use
  Company Number: None

PATIENT
  Age: 50 Year
  Sex: Male

DRUGS (5)
  1. VALIUM [Suspect]
     Active Substance: DIAZEPAM
     Indication: Product used for unknown indication
     Dosage: 10MG 3 FOIS/J
     Route: 050
  2. CANNABIS SATIVA SUBSP. INDICA TOP [Suspect]
     Active Substance: CANNABIS SATIVA SUBSP. INDICA TOP
     Indication: Product used for unknown indication
     Route: 050
     Dates: start: 1983
  3. COCAINE [Suspect]
     Active Substance: COCAINE
     Indication: Product used for unknown indication
     Route: 050
  4. COCAINE [Suspect]
     Active Substance: COCAINE
     Route: 050
     Dates: start: 1987, end: 202109
  5. NICOTINE\TOBACCO LEAF [Suspect]
     Active Substance: NICOTINE\TOBACCO LEAF
     Indication: Product used for unknown indication
     Dosage: 1 PAQUET/J
     Route: 050
     Dates: start: 1987

REACTIONS (5)
  - Psoas abscess [Recovering/Resolving]
  - Intervertebral discitis [Recovering/Resolving]
  - Drug abuse [Not Recovered/Not Resolved]
  - Inflammatory marker increased [Recovering/Resolving]
  - Back pain [Recovering/Resolving]

NARRATIVE: CASE EVENT DATE: 19830101
